FAERS Safety Report 4964520-3 (Version None)
Quarter: 2006Q2

REPORT INFORMATION
  Report Type: 
  Country: None (occurrence: None)
  Receive Date: 20060406
  Receipt Date: 20060331
  Transmission Date: 20061013
  Serious: Yes (Other)
  Sender: FDA-Public Use
  Company Number: BR-GLAXOSMITHKLINE-A0600416A

PATIENT
  Age: 74 Year
  Sex: Female
  Weight: 70 kg

DRUGS (5)
  1. ZYBAN [Suspect]
     Indication: SMOKING CESSATION THERAPY
     Dosage: 150MG PER DAY
     Route: 048
     Dates: start: 20060327
  2. BROMAZEPAM [Concomitant]
     Dosage: .5TAB TWICE PER DAY
     Route: 048
     Dates: start: 19960101
  3. NORVASC [Concomitant]
     Dates: start: 19960101
  4. SYNTHROID [Concomitant]
     Dates: start: 19960101
  5. UNSPECIFIED MEDICATION [Concomitant]

REACTIONS (4)
  - ASTHMA [None]
  - INSOMNIA [None]
  - OEDEMA [None]
  - OEDEMA PERIPHERAL [None]
